FAERS Safety Report 8639675 (Version 2)
Quarter: 2014Q1

REPORT INFORMATION
  Report Type: Spontaneous
  Country: US (occurrence: None)
  Receive Date: 20120323
  Receipt Date: 20130305
  Transmission Date: 20141002
  Serious: Yes (Other)
  Sender: FDA-Public Use
  Company Number: 163-21880-11091763

PATIENT
  Age: 54 Year
  Sex: Male
  Weight: 95.71 kg

DRUGS (7)
  1. REVLIMID [Suspect]
     Indication: PLASMA CELL MYELOMA
     Dosage: QD ON DAYS 1-21 OF 28
     Route: 048
     Dates: start: 201011
  2. ACYCLOVIR (ACICLOVIR) (ACICLOVIR) [Concomitant]
  3. NEURONTIN (GABAPENTIN) [Concomitant]
  4. LISINOPRIL (LISINOPRIL) [Concomitant]
  5. VERAPAMIL [Concomitant]
  6. ZOMETA (ZOLEDRONIC ACID) [Concomitant]
  7. CLONIDINE [Concomitant]

REACTIONS (1)
  - Platelet count decreased [None]
